FAERS Safety Report 7745285-9 (Version None)
Quarter: 2011Q3

REPORT INFORMATION
  Report Type: 
  Country: None (occurrence: None)
  Receive Date: 20110819
  Receipt Date: 20110627
  Transmission Date: 20111222
  Serious: Yes (Hospitalization)
  Sender: FDA-Public Use
  Company Number: 036102

PATIENT
  Age: 46 Year
  Sex: Female

DRUGS (5)
  1. PHENYTOIN [Concomitant]
  2. LACOSAMIDE [Suspect]
  3. LEVETIRACETAM [Suspect]
  4. ZONISAMIDE [Concomitant]
  5. LAMOTRIGINE [Concomitant]

REACTIONS (1)
  - MAJOR DEPRESSION [None]
